FAERS Safety Report 16330990 (Version 1)
Quarter: 2019Q2

REPORT INFORMATION
  Report Type: Spontaneous
  Country: US (occurrence: US)
  Receive Date: 20190517
  Receipt Date: 20190517
  Transmission Date: 20190711
  Serious: Yes (Other)
  Sender: FDA-Public Use
  Company Number: None

PATIENT
  Age: 52 Year
  Sex: Female
  Weight: 50.85 kg

DRUGS (1)
  1. NADOLOL 20 MG [Suspect]
     Active Substance: NADOLOL
     Indication: MIGRAINE
     Dosage: ?          QUANTITY:1 TABLET(S);?
     Route: 048
     Dates: start: 20180709, end: 20180712

REACTIONS (1)
  - Asthma [None]

NARRATIVE: CASE EVENT DATE: 20180713
